FAERS Safety Report 8456441-9 (Version None)
Quarter: 2012Q2

REPORT INFORMATION
  Report Type: 
  Country: None (occurrence: None)
  Receive Date: 20120323
  Receipt Date: 20111220
  Transmission Date: 20120825
  Serious: Yes (Other)
  Sender: FDA-Public Use
  Company Number: 163-21880-11102571

PATIENT
  Age: 77 Year
  Sex: Male

DRUGS (5)
  1. PROCRIT [Concomitant]
  2. IVIG (IMMUNOGLOBULIN)(INJECTION FOR INFUSION) [Concomitant]
  3. REVLIMID [Suspect]
     Indication: MULTIPLE MYELOMA
     Dosage: 10 MG, DAILY X 14 DAYS Q21 DAYS, PO
     Route: 048
     Dates: start: 20110928, end: 20111001
  4. REVLIMID [Suspect]
     Indication: MULTIPLE MYELOMA
     Dosage: 10 MG, DAILY X 14 DAYS Q21 DAYS, PO
     Route: 048
     Dates: start: 20111027, end: 20111117
  5. VELCADE [Concomitant]

REACTIONS (1)
  - PLATELET COUNT DECREASED [None]
